FAERS Safety Report 21765465 (Version 4)
Quarter: 2023Q2

REPORT INFORMATION
  Report Type: Report from Study
  Country: GB (occurrence: GB)
  Receive Date: 20221222
  Receipt Date: 20230509
  Transmission Date: 20230721
  Serious: Yes (Other)
  Sender: FDA-Public Use
  Company Number: GB-TAKEDA-2022TUS098554

PATIENT
  Sex: Female

DRUGS (1)
  1. VEDOLIZUMAB [Suspect]
     Active Substance: VEDOLIZUMAB
     Indication: Colitis ulcerative
     Dosage: 108 MILLIGRAM, Q2WEEKS
     Route: 058

REACTIONS (7)
  - Colitis ulcerative [Unknown]
  - Dyspepsia [Unknown]
  - Headache [Unknown]
  - Injection site pain [Unknown]
  - Injection site haemorrhage [Unknown]
  - Diarrhoea [Recovered/Resolved]
  - Illness [Recovered/Resolved]
